FAERS Safety Report 5474808-8 (Version None)
Quarter: 2007Q4

REPORT INFORMATION
  Report Type: 
  Country: None (occurrence: None)
  Receive Date: 20071002
  Receipt Date: 20071001
  Transmission Date: 20080405
  Serious: Yes (Other)
  Sender: FDA-Public Use
  Company Number: D0054704A

PATIENT
  Age: 41 Year
  Sex: Female
  Weight: 54 kg

DRUGS (6)
  1. FRAXIPARIN [Suspect]
     Dosage: .4ML PER DAY
     Route: 058
  2. TOPOTECAN [Suspect]
     Indication: CERVIX CANCER METASTATIC
     Dosage: 1.21MG AS DIRECTED
     Route: 042
     Dates: start: 20070813, end: 20070815
  3. CISPLATIN [Suspect]
     Indication: CERVIX CANCER METASTATIC
     Dosage: 80.5MG PER DAY
     Route: 042
     Dates: start: 20070813, end: 20070813
  4. NEORECORMON [Suspect]
     Dosage: 30000IU AS DIRECTED
     Route: 042
     Dates: start: 20070724, end: 20070814
  5. TOPOTECAN [Concomitant]
     Dosage: 1.21MG PER DAY
     Route: 042
     Dates: start: 20070723, end: 20070725
  6. CISPLATIN [Concomitant]
     Dosage: 80.5MG PER DAY
     Route: 042
     Dates: start: 20070723, end: 20070723

REACTIONS (1)
  - THROMBOCYTHAEMIA [None]
